FAERS Safety Report 7029468-1 (Version None)
Quarter: 2010Q4

REPORT INFORMATION
  Report Type: 
  Country: None (occurrence: None)
  Receive Date: 20101005
  Receipt Date: 20100923
  Transmission Date: 20110411
  Serious: Yes (Other)
  Sender: FDA-Public Use
  Company Number: US-WYE-H17756310

PATIENT
  Sex: Female
  Weight: 62.65 kg

DRUGS (5)
  1. EFFEXOR XR [Suspect]
     Indication: DEPRESSION
     Route: 048
     Dates: end: 20091101
  2. EFFEXOR XR [Suspect]
     Route: 048
     Dates: start: 20091101, end: 20100620
  3. EFFEXOR XR [Suspect]
     Route: 048
     Dates: start: 20100621, end: 20100801
  4. EFFEXOR XR [Suspect]
     Route: 048
     Dates: start: 20100801
  5. YAZ [Concomitant]
     Indication: CONTRACEPTION
     Dosage: UNKNOWN
     Dates: start: 20090101

REACTIONS (12)
  - ALCOHOL ABUSE [None]
  - ANXIETY [None]
  - DEPRESSED MOOD [None]
  - DIZZINESS [None]
  - DRUG EFFECT DECREASED [None]
  - DRUG WITHDRAWAL SYNDROME [None]
  - HYPERTENSION [None]
  - IMPAIRED DRIVING ABILITY [None]
  - INTENTIONAL DRUG MISUSE [None]
  - PANIC ATTACK [None]
  - SENSORY DISTURBANCE [None]
  - WEIGHT INCREASED [None]
